FAERS Safety Report 6507283-2 (Version None)
Quarter: 2009Q4

REPORT INFORMATION
  Report Type: 
  Country: None (occurrence: None)
  Receive Date: 20091221
  Receipt Date: 20091216
  Transmission Date: 20100525
  Serious: Yes (Hospitalization)
  Sender: FDA-Public Use
  Company Number: PHHO2005GB15529

PATIENT
  Sex: Male
  Weight: 108 kg

DRUGS (8)
  1. VALSARTAN [Suspect]
     Dosage: LEVEL 1
     Route: 048
     Dates: start: 20030301
  2. NATEGLINIDE [Suspect]
     Dosage: LEVEL 2
     Route: 048
  3. PLACEBO PLACEBO [Suspect]
     Indication: CARDIOVASCULAR DISORDER
     Dosage: LEVEL 1
     Route: 048
     Dates: start: 20030301
  4. PLACEBO PLACEBO [Suspect]
     Dosage: LEVEL 2
     Route: 048
  5. ASPIRIN [Concomitant]
  6. SIMVASTATIN [Concomitant]
  7. FRUSEMIDE [Concomitant]
  8. DOXAZOSIN MESYLATE [Concomitant]

REACTIONS (7)
  - DIZZINESS [None]
  - ELECTROCARDIOGRAM T WAVE ABNORMAL [None]
  - FLUSHING [None]
  - PRESYNCOPE [None]
  - SENSATION OF PRESSURE [None]
  - SYNCOPE [None]
  - VERTIGO POSITIONAL [None]
